FAERS Safety Report 20632114 (Version 1)
Quarter: 2022Q1

REPORT INFORMATION
  Report Type: Spontaneous
  Country: RU (occurrence: RU)
  Receive Date: 20220324
  Receipt Date: 20220324
  Transmission Date: 20220423
  Serious: Yes (Other)
  Sender: FDA-Public Use
  Company Number: RU-ABBVIE-22K-251-4329143-00

PATIENT
  Age: 17 Year
  Sex: Male
  Weight: 63.8 kg

DRUGS (8)
  1. VALPROIC ACID [Suspect]
     Active Substance: VALPROIC ACID
     Indication: Epilepsy
     Route: 048
     Dates: start: 20200708, end: 20200911
  2. TRIFLUOPERAZINE HYDROCHLORIDE [Suspect]
     Active Substance: TRIFLUOPERAZINE HYDROCHLORIDE
     Indication: Hallucination
     Route: 048
     Dates: start: 20200818
  3. CHLORPROMAZINE [Suspect]
     Active Substance: CHLORPROMAZINE
     Indication: Sedative therapy
     Route: 048
     Dates: start: 20200823
  4. CHLORPROMAZINE [Suspect]
     Active Substance: CHLORPROMAZINE
     Indication: Prophylaxis against psychomotor agitation
  5. AKINETON [Concomitant]
     Active Substance: BIPERIDEN HYDROCHLORIDE
     Indication: Product used for unknown indication
     Dates: start: 20200818
  6. NITROFURAL [Concomitant]
     Indication: Product used for unknown indication
  7. LACTULOSE [Concomitant]
     Active Substance: LACTULOSE
     Indication: Product used for unknown indication
  8. HEXORAL [Concomitant]
     Indication: Product used for unknown indication

REACTIONS (1)
  - Extrapyramidal disorder [Recovered/Resolved]

NARRATIVE: CASE EVENT DATE: 20200908
